FAERS Safety Report 8956946 (Version 1)
Quarter: 2012Q4

REPORT INFORMATION
  Report Type: 
  Country: FR (occurrence: FR)
  Receive Date: 20121210
  Receipt Date: 20121210
  Transmission Date: 20130627
  Serious: Yes (Hospitalization)
  Sender: FDA-Public Use
  Company Number: FR-VERTEX PHARMACEUTICALS INC.-2012-025874

PATIENT
  Age: 52 Year
  Sex: Female

DRUGS (10)
  1. INCIVO [Suspect]
     Indication: CHRONIC HEPATITIS C
     Dosage: 375 mg, UNK
     Dates: start: 201111, end: 201112
  2. COPEGUS [Suspect]
     Indication: CHRONIC HEPATITIS C
     Dosage: 150 ?g, qw
     Route: 058
     Dates: start: 200906
  3. COPEGUS [Suspect]
     Dosage: 1.2 g, UNK
     Route: 058
     Dates: start: 201005, end: 201103
  4. COPEGUS [Suspect]
     Dosage: 1.2 g, UNK
     Route: 058
     Dates: start: 201103, end: 201105
  5. COPEGUS [Suspect]
     Dosage: UNK
     Route: 058
     Dates: start: 201111, end: 201112
  6. PEGASYS [Suspect]
     Indication: CHRONIC HEPATITIS C
     Dosage: 180 ?g, UNK
     Route: 058
     Dates: start: 201005, end: 201103
  7. PEGASYS [Suspect]
     Dosage: UNK
     Route: 058
     Dates: start: 201111, end: 201112
  8. VIRAFERON PEG [Concomitant]
     Indication: CHRONIC HEPATITIS C
     Dates: end: 201005
  9. VIRAFERON PEG [Concomitant]
     Dates: start: 201103, end: 201105
  10. REBETOL [Concomitant]
     Indication: CHRONIC HEPATITIS C
     Dates: end: 201005

REACTIONS (3)
  - Myalgia [Not Recovered/Not Resolved]
  - Arthralgia [Not Recovered/Not Resolved]
  - Extrapyramidal disorder [Not Recovered/Not Resolved]
